FAERS Safety Report 10025950 (Version 2)
Quarter: 2014Q1

REPORT INFORMATION
  Report Type: Spontaneous
  Country: DE (occurrence: None)
  Receive Date: 20140314
  Receipt Date: 20140314
  Transmission Date: 20141002
  Serious: Yes (Other)
  Sender: FDA-Public Use
  Company Number: 7274508

PATIENT
  Age: 60 Year
  Sex: Female

DRUGS (3)
  1. EUTHYROX [Suspect]
     Indication: BASEDOW^S DISEASE
     Route: 048
  2. RANITIC (RANITDINE HYDROCHLORIDE) (RANITIDINE HYROCHLORIDE) [Concomitant]
  3. ASPIRIN /000027801/ (ACETYLSALICYLIC AICD) (ACETYLSALICYLIC ACID) [Concomitant]

REACTIONS (5)
  - Arterial occlusive disease [None]
  - Malaise [None]
  - Blood thyroid stimulating hormone decreased [None]
  - Sleep disorder [None]
  - Headache [None]
